FAERS Safety Report 15270833 (Version 1)
Quarter: 2018Q3

REPORT INFORMATION
  Report Type: Spontaneous
  Country: US (occurrence: US)
  Receive Date: 20180813
  Receipt Date: 20180813
  Transmission Date: 20181010
  Serious: Yes (Other)
  Sender: FDA-Public Use
  Company Number: US-SA-2018SA220222

PATIENT
  Sex: Female
  Weight: 72.57 kg

DRUGS (1)
  1. TAXOTERE [Suspect]
     Active Substance: DOCETAXEL
     Indication: BREAST CANCER FEMALE
     Dosage: UNK UNK, QW
     Route: 042
     Dates: start: 200212, end: 200212

REACTIONS (2)
  - Psychological trauma [Unknown]
  - Alopecia [Unknown]

NARRATIVE: CASE EVENT DATE: 200212
